FAERS Safety Report 4682804-3 (Version None)
Quarter: 2005Q2

REPORT INFORMATION
  Report Type: 
  Country: None (occurrence: None)
  Receive Date: 20050606
  Receipt Date: 20050523
  Transmission Date: 20051028
  Serious: Yes (Other)
  Sender: FDA-Public Use
  Company Number: 2005GB01028

PATIENT
  Age: 70 Year
  Sex: Male

DRUGS (8)
  1. QUETIAPINE [Suspect]
     Indication: HALLUCINATION
     Route: 048
     Dates: start: 20050420, end: 20050502
  2. STALEVO 100 [Concomitant]
     Indication: PARKINSONISM
     Route: 048
     Dates: start: 20040901
  3. SINEMET [Concomitant]
     Indication: PARKINSONISM
     Route: 048
     Dates: start: 20020301
  4. SINEMET CR [Concomitant]
     Indication: PARKINSONISM
     Route: 048
     Dates: start: 19990101
  5. CABERGOLINE [Concomitant]
     Indication: PARKINSONISM
     Route: 048
     Dates: start: 19990301
  6. CABERGOLINE [Concomitant]
     Route: 048
     Dates: start: 20050505
  7. MADOPAR [Concomitant]
     Indication: PARKINSONISM
     Route: 048
     Dates: start: 20020901
  8. OXYBUTYNIN [Concomitant]
     Indication: URINARY TRACT DISORDER
     Route: 048
     Dates: start: 20040401

REACTIONS (3)
  - CONDITION AGGRAVATED [None]
  - DRUG INEFFECTIVE [None]
  - HALLUCINATION [None]
